FAERS Safety Report 7724977-1 (Version None)
Quarter: 2011Q3

REPORT INFORMATION
  Report Type: 
  Country: None (occurrence: None)
  Receive Date: 20110901
  Receipt Date: 20110822
  Transmission Date: 20111222
  Serious: Yes (Hospitalization, Other)
  Sender: FDA-Public Use
  Company Number: US-ALLERGAN-1111263US

PATIENT
  Age: 76 Year
  Sex: Male

DRUGS (8)
  1. AVASTIN [Concomitant]
     Dosage: UNK
     Dates: start: 20110101
  2. PREDNISONE [Concomitant]
  3. NORVASC [Concomitant]
  4. OZURDEX [Suspect]
     Indication: RETINAL VEIN OCCLUSION
  5. MULTAQ [Suspect]
     Indication: ATRIAL FIBRILLATION
     Dosage: 400 MG, BID
     Route: 048
     Dates: start: 20090901
  6. PHENYTOIN [Concomitant]
  7. PROPRANOLOL [Concomitant]
  8. ASPIRIN [Concomitant]

REACTIONS (5)
  - PYREXIA [None]
  - UPPER RESPIRATORY TRACT INFECTION [None]
  - EYE INFECTION [None]
  - RETINAL DETACHMENT [None]
  - UPPER-AIRWAY COUGH SYNDROME [None]
